FAERS Safety Report 16877341 (Version 1)
Quarter: 2019Q4

REPORT INFORMATION
  Report Type: Spontaneous
  Country: US (occurrence: US)
  Receive Date: 20191002
  Receipt Date: 20191002
  Transmission Date: 20200122
  Serious: No
  Sender: FDA-Public Use
  Company Number: US-ARRAY-2019-06422

PATIENT

DRUGS (3)
  1. ATROPINE METHONITRATE [Concomitant]
     Indication: PRODUCT USED FOR UNKNOWN INDICATION
  2. BRAFTOVI [Suspect]
     Active Substance: ENCORAFENIB
     Indication: GASTROENTERITIS
     Dosage: 450 MG, QD
     Route: 048
     Dates: start: 20190802
  3. MEKTOVI [Suspect]
     Active Substance: BINIMETINIB
     Indication: GASTROENTERITIS
     Dosage: 45 MG, QD
     Route: 048
     Dates: start: 20190802

REACTIONS (2)
  - Diarrhoea [Unknown]
  - Product use in unapproved indication [Unknown]

NARRATIVE: CASE EVENT DATE: 20190802
